FAERS Safety Report 5032064-9 (Version None)
Quarter: 2006Q2

REPORT INFORMATION
  Report Type: 
  Country: None (occurrence: None)
  Receive Date: 20060621
  Receipt Date: 20060614
  Transmission Date: 20061013
  Serious: Yes (Death, Hospitalization)
  Sender: FDA-Public Use
  Company Number: CM-MERCK-0606USA02436

PATIENT
  Age: 14 Year
  Sex: Female

DRUGS (1)
  1. STROMECTOL [Suspect]
     Route: 048
     Dates: start: 20060503, end: 20060503

REACTIONS (3)
  - PRURITUS [None]
  - RASH [None]
  - TOXIC EPIDERMAL NECROLYSIS [None]
